FAERS Safety Report 9787000 (Version 1)
Quarter: 2013Q4

REPORT INFORMATION
  Report Type: Spontaneous
  Country: US (occurrence: US)
  Receive Date: 20131227
  Receipt Date: 20131227
  Transmission Date: 20140711
  Serious: Yes (Life-Threatening, Hospitalization)
  Sender: FDA-Public Use
  Company Number: US-SA-2013SA133154

PATIENT
  Age: 63 Year
  Sex: Female
  Weight: 68.7 kg

DRUGS (3)
  1. HECTOROL [Suspect]
     Indication: HYPERPARATHYROIDISM
     Route: 042
     Dates: start: 20131216
  2. ALL OTHER THERAPEUTIC PRODUCTS [Concomitant]
     Dosage: LOT NUMBER REPORTED AS 13031202
  3. EPOGEN [Concomitant]
     Dosage: DOSE:5400 UNIT(S)
     Dates: start: 20131216

REACTIONS (3)
  - Loss of consciousness [Unknown]
  - Pulse absent [Unknown]
  - Dizziness [Unknown]
